FAERS Safety Report 17531645 (Version 1)
Quarter: 2020Q1

REPORT INFORMATION
  Report Type: Spontaneous
  Country: US (occurrence: US)
  Receive Date: 20200312
  Receipt Date: 20200312
  Transmission Date: 20200409
  Serious: No
  Sender: FDA-Public Use
  Company Number: US-GLAXOSMITHKLINE-US2020037900

PATIENT
  Age: 35 Year
  Sex: Female

DRUGS (1)
  1. ADVAIR DISKUS [Suspect]
     Active Substance: FLUTICASONE PROPIONATE\SALMETEROL XINAFOATE
     Indication: ASTHMA
     Dosage: UNK UNK, QD
     Route: 065
     Dates: start: 2015

REACTIONS (6)
  - Exposure during pregnancy [Unknown]
  - Oropharyngeal pain [Recovered/Resolved]
  - Underdose [Unknown]
  - Nasopharyngitis [Not Recovered/Not Resolved]
  - Respiratory tract congestion [Not Recovered/Not Resolved]
  - Oropharyngeal discomfort [Not Recovered/Not Resolved]

NARRATIVE: CASE EVENT DATE: 20200228
